FAERS Safety Report 23511549 (Version 1)
Quarter: 2024Q1

REPORT INFORMATION
  Report Type: Spontaneous
  Country: JP (occurrence: JP)
  Receive Date: 20240212
  Receipt Date: 20240212
  Transmission Date: 20240410
  Serious: Yes (Other)
  Sender: FDA-Public Use
  Company Number: JP-ARBOR PHARMACEUTICALS, LLC-JP-2024AZR000122

PATIENT
  Sex: Female

DRUGS (2)
  1. GABAPENTIN ENACARBIL [Suspect]
     Active Substance: GABAPENTIN ENACARBIL
     Indication: Pruritus
     Dosage: 2 TABLETS, UNKNOWN FREQ.
     Route: 048
  2. GABAPENTIN ENACARBIL [Suspect]
     Active Substance: GABAPENTIN ENACARBIL
     Dosage: 1 TABLET, UNKNOWN FREQ.
     Route: 048
     Dates: end: 20240128

REACTIONS (6)
  - Drug dependence [Unknown]
  - Dementia [Unknown]
  - Back pain [Unknown]
  - Bedridden [Unknown]
  - Gait disturbance [Unknown]
  - Malaise [Unknown]

NARRATIVE: CASE EVENT DATE: 20240128
